FAERS Safety Report 7391729-4 (Version None)
Quarter: 2011Q2

REPORT INFORMATION
  Report Type: 
  Country: None (occurrence: None)
  Receive Date: 20110404
  Receipt Date: 20110325
  Transmission Date: 20111010
  Serious: Yes (Other)
  Sender: FDA-Public Use
  Company Number: US-JNJFOC-20110308825

PATIENT
  Age: 93 Year
  Sex: Female
  Weight: 46.27 kg

DRUGS (5)
  1. ARICEPT [Concomitant]
     Indication: DEMENTIA ALZHEIMER'S TYPE
     Route: 048
  2. NAMENDA [Concomitant]
     Indication: DEMENTIA ALZHEIMER'S TYPE
     Route: 048
  3. EXTRA STRENGTH TYLENOL [Suspect]
     Route: 048
  4. EXTRA STRENGTH TYLENOL PM [Suspect]
     Indication: INSOMNIA
     Route: 048
  5. EXTRA STRENGTH TYLENOL [Suspect]
     Indication: WRIST FRACTURE
     Dosage: 500 MG ONCE DAILY FOR 3-4 DAYS
     Route: 048

REACTIONS (7)
  - INSOMNIA [None]
  - AGITATION [None]
  - ABNORMAL BEHAVIOUR [None]
  - HALLUCINATION, VISUAL [None]
  - DISORIENTATION [None]
  - DRUG INEFFECTIVE [None]
  - AMNESIA [None]
